FAERS Safety Report 17211723 (Version 1)
Quarter: 2019Q4

REPORT INFORMATION
  Report Type: Report from Study
  Country: None (occurrence: US)
  Receive Date: 20191230
  Receipt Date: 20191230
  Transmission Date: 20200122
  Serious: Yes (Other)
  Sender: FDA-Public Use
  Company Number: US-ABBVIE-19K-163-3208200-00

PATIENT
  Sex: Female

DRUGS (1)
  1. HUMIRA [Suspect]
     Active Substance: ADALIMUMAB
     Indication: CROHN^S DISEASE
     Route: 058

REACTIONS (5)
  - Sitting disability [Unknown]
  - Bone cyst [Unknown]
  - Spinal pain [Recovered/Resolved]
  - Dysstasia [Unknown]
  - Insomnia [Unknown]

NARRATIVE: CASE EVENT DATE: 2019
